FAERS Safety Report 23499607 (Version 1)
Quarter: 2024Q1

REPORT INFORMATION
  Report Type: Other
  Country: NZ (occurrence: NZ)
  Receive Date: 20240208
  Receipt Date: 20240208
  Transmission Date: 20240410
  Serious: Yes (Other)
  Sender: FDA-Public Use
  Company Number: NZ-TASMAN PHARMA, INC.-2024TSM00066

PATIENT
  Age: 68 Year
  Sex: Male

DRUGS (5)
  1. CLOZAPINE [Suspect]
     Active Substance: CLOZAPINE
     Dosage: UNK
  2. CARBIDOPA\LEVODOPA [Concomitant]
     Active Substance: CARBIDOPA\LEVODOPA
  3. CLONAZEPAM [Concomitant]
     Active Substance: CLONAZEPAM
  4. APOMORPHINE [Concomitant]
     Active Substance: APOMORPHINE
  5. MIRTAZAPINE [Concomitant]
     Active Substance: MIRTAZAPINE

REACTIONS (5)
  - Cerebrovascular accident [Unknown]
  - Dementia [Unknown]
  - Parkinsonism [Unknown]
  - Myocardial infarction [Unknown]
  - Delirium [Unknown]
